FAERS Safety Report 7624466-9 (Version None)
Quarter: 2011Q3

REPORT INFORMATION
  Report Type: 
  Country: None (occurrence: None)
  Receive Date: 20110720
  Receipt Date: 20110711
  Transmission Date: 20111222
  Serious: Yes (Hospitalization)
  Sender: FDA-Public Use
  Company Number: FR-BRISTOL-MYERS SQUIBB COMPANY-15899206

PATIENT
  Age: 69 Year
  Sex: Female

DRUGS (7)
  1. GLIPIZIDE [Suspect]
  2. COTRIATEC [Suspect]
     Indication: HYPERTENSION
     Route: 048
  3. ALDALIX [Suspect]
     Indication: HYPERTENSION
     Dosage: 1DF=1 UNITS NOS
     Route: 048
     Dates: end: 20060323
  4. VERAPAMIL EXTENDED-RELEASE [Suspect]
     Dosage: 1DF=240 UNITS NOS
  5. MEDIATENSYL [Concomitant]
     Dosage: 1DF=2 CAPS MEDIATENSYL 60MG
  6. IRBESARTAN [Suspect]
     Indication: HYPERTENSION
     Route: 048
  7. GLUCOPHAGE [Suspect]
     Route: 048

REACTIONS (8)
  - GASTRIC ULCER [None]
  - ANGINA PECTORIS [None]
  - HYPERKALAEMIA [None]
  - GASTROINTESTINAL HAEMORRHAGE [None]
  - RENAL FAILURE ACUTE [None]
  - ANAEMIA [None]
  - METABOLIC ACIDOSIS [None]
  - LUNG DISORDER [None]
